FAERS Safety Report 8279298-8 (Version None)
Quarter: 2012Q2

REPORT INFORMATION
  Report Type: 
  Country: None (occurrence: None)
  Receive Date: 20120412
  Receipt Date: 20120406
  Transmission Date: 20120825
  Serious: Yes (Other)
  Sender: FDA-Public Use
  Company Number: CHPA2012US006489

PATIENT
  Age: 63 Year
  Sex: Female

DRUGS (3)
  1. PREVACID 24 HR [Suspect]
     Indication: IRRITABLE BOWEL SYNDROME
     Dosage: 15 MG, QD
     Route: 048
     Dates: start: 20100101
  2. NEXIUM [Suspect]
     Dosage: UNK, UNK
     Route: 065
  3. PRILOSEC [Concomitant]

REACTIONS (4)
  - OFF LABEL USE [None]
  - INCORRECT DRUG ADMINISTRATION DURATION [None]
  - CONCOMITANT DISEASE AGGRAVATED [None]
  - MUSCLE DISORDER [None]
